FAERS Safety Report 18331194 (Version 1)
Quarter: 2020Q3

REPORT INFORMATION
  Report Type: Spontaneous
  Country: IT (occurrence: IT)
  Receive Date: 20200930
  Receipt Date: 20200930
  Transmission Date: 20201103
  Serious: Yes (Other)
  Sender: FDA-Public Use
  Company Number: IT-NOVOPROD-739457

PATIENT
  Age: 72 Year
  Sex: Male

DRUGS (1)
  1. NOVORAPID [Suspect]
     Active Substance: INSULIN ASPART
     Indication: INTENTIONAL SELF-INJURY
     Dosage: 150 IU, QD
     Route: 058
     Dates: start: 20200621, end: 20200621

REACTIONS (2)
  - Hyperinsulinaemic hypoglycaemia [Recovered/Resolved]
  - Drug abuse [Recovered/Resolved]

NARRATIVE: CASE EVENT DATE: 20200621
